FAERS Safety Report 8948518 (Version 1)
Quarter: 2012Q4

REPORT INFORMATION
  Report Type: 
  Country: US (occurrence: US)
  Receive Date: 20121206
  Receipt Date: 20121206
  Transmission Date: 20130627
  Serious: Yes (Hospitalization)
  Sender: FDA-Public Use
  Company Number: PHEH2012US023676

PATIENT
  Sex: Female

DRUGS (2)
  1. GLEEVEC [Suspect]
     Indication: CHRONIC MYELOID LEUKAEMIA
     Dosage: 200 mg, BID
     Route: 048
  2. GLEEVEC [Suspect]
     Dosage: UNK UKN, UNK

REACTIONS (9)
  - Flank pain [Unknown]
  - Papillary thyroid cancer [Unknown]
  - Second primary malignancy [Unknown]
  - Abscess neck [Unknown]
  - Goitre [Unknown]
  - Melanocytic naevus [Unknown]
  - Bacterial test positive [Unknown]
  - Blood urine present [Unknown]
  - Pruritus [Unknown]
